FAERS Safety Report 6125176-X (Version None)
Quarter: 2009Q1

REPORT INFORMATION
  Report Type: 
  Country: None (occurrence: None)
  Receive Date: 20090316
  Receipt Date: 20090311
  Transmission Date: 20090719
  Serious: Yes (Disabling)
  Sender: FDA-Public Use
  Company Number: 200914574

PATIENT
  Age: 68 Year
  Sex: Female

DRUGS (6)
  1. VIVAGLOBIN [Suspect]
     Dosage: 8.48 G Q1W SC, SC, SC
     Route: 058
     Dates: start: 20081223, end: 20081223
  2. VIVAGLOBIN [Suspect]
     Dosage: 8.48 G Q1W SC, SC, SC
     Route: 058
     Dates: start: 20081223, end: 20081223
  3. VIVAGLOBIN [Suspect]
  4. LASIX [Concomitant]
  5. ANTIHYPERLIPIDEMICS [Concomitant]
  6. INHALERS [Concomitant]

REACTIONS (1)
  - OEDEMA PERIPHERAL [None]
